FAERS Safety Report 8996711 (Version 1)
Quarter: 2012Q4

REPORT INFORMATION
  Report Type: Spontaneous
  Country: US (occurrence: None)
  Receive Date: 20121228
  Receipt Date: 20121228
  Transmission Date: 20130627
  Serious: No
  Sender: FDA-Public Use
  Company Number: None

PATIENT
  Sex: Male

DRUGS (1)
  1. VALSARTAN [Suspect]
     Indication: HYPERTENSION
     Dosage: Valsartam 320 mg 1 qd
     Dates: start: 201110

REACTIONS (1)
  - Blood pressure inadequately controlled [None]
